FAERS Safety Report 4530972-6 (Version None)
Quarter: 2004Q4

REPORT INFORMATION
  Report Type: 
  Country: None (occurrence: None)
  Receive Date: 20041213
  Receipt Date: 20041202
  Transmission Date: 20050328
  Serious: Yes (Hospitalization)
  Sender: FDA-Public Use
  Company Number: 200410883BCA

PATIENT
  Age: 23 Year
  Sex: Female

DRUGS (3)
  1. GAMUNEX [Suspect]
     Indication: ANTI-PLATELET ANTIBODY
     Dosage: SEE IMAGE
     Route: 042
     Dates: start: 20041118
  2. GAMUNEX [Suspect]
     Indication: ANTI-PLATELET ANTIBODY
     Dosage: SEE IMAGE
     Route: 042
     Dates: start: 20041118
  3. GAMUNEX [Suspect]

REACTIONS (6)
  - CHEST DISCOMFORT [None]
  - COUGH [None]
  - HYPERSENSITIVITY [None]
  - LUNG DISORDER [None]
  - RESPIRATORY DISTRESS [None]
  - WHEEZING [None]
